FAERS Safety Report 13852623 (Version 1)
Quarter: 2017Q3

REPORT INFORMATION
  Report Type: Spontaneous
  Country: US (occurrence: US)
  Receive Date: 20170810
  Receipt Date: 20170810
  Transmission Date: 20171127
  Serious: No
  Sender: FDA-Public Use
  Company Number: GXBR2017US001949

PATIENT
  Sex: Female
  Weight: 56.69 kg

DRUGS (1)
  1. ZINC OXIDE. [Suspect]
     Active Substance: ZINC OXIDE
     Indication: SUNBURN
     Dosage: UNK
     Route: 061

REACTIONS (2)
  - Sunburn [Not Recovered/Not Resolved]
  - Expired product administered [Unknown]
